FAERS Safety Report 9304841 (Version 1)
Quarter: 2013Q2

REPORT INFORMATION
  Report Type: Spontaneous
  Country: US (occurrence: None)
  Receive Date: 20130521
  Receipt Date: 20130521
  Transmission Date: 20140414
  Serious: Yes (Other)
  Sender: FDA-Public Use
  Company Number: None

PATIENT
  Age: 53 Year
  Sex: Male
  Weight: 71.22 kg

DRUGS (2)
  1. NASONEX [Suspect]
     Indication: RHINITIS
     Dosage: 2 SPRAYS ONCE A DAY NASAL
     Dates: start: 20130507, end: 20130519
  2. ASTEPRO [Suspect]
     Indication: RHINITIS
     Dosage: 2 SQUIRTS ONCE A DAY NASAL
     Dates: start: 20130507, end: 20130517

REACTIONS (3)
  - Tremor [None]
  - Vision blurred [None]
  - Nervousness [None]
